FAERS Safety Report 13506607 (Version 1)
Quarter: 2017Q2

REPORT INFORMATION
  Report Type: Spontaneous
  Country: US (occurrence: US)
  Receive Date: 20170502
  Receipt Date: 20170502
  Transmission Date: 20170830
  Serious: No
  Sender: FDA-Public Use
  Company Number: US-ROCHE-1448881

PATIENT
  Sex: Male

DRUGS (1)
  1. BEVACIZUMAB [Suspect]
     Active Substance: BEVACIZUMAB
     Indication: PULMONARY VEIN STENOSIS
     Route: 065

REACTIONS (3)
  - Oxygen saturation decreased [Unknown]
  - Proteinuria [Unknown]
  - Haemoptysis [Unknown]
